FAERS Safety Report 5629671-9 (Version None)
Quarter: 2008Q1

REPORT INFORMATION
  Report Type: 
  Country: None (occurrence: None)
  Receive Date: 20080218
  Receipt Date: 20080211
  Transmission Date: 20080703
  Serious: Yes (Life-Threatening, Hospitalization)
  Sender: FDA-Public Use
  Company Number: B0507449A

PATIENT
  Age: 65 Year
  Sex: Male

DRUGS (3)
  1. CLAMOXYL [Suspect]
     Indication: TOOTH ABSCESS
     Dosage: 1G SINGLE DOSE
     Route: 048
     Dates: start: 20070926, end: 20070926
  2. AMARYL [Concomitant]
     Route: 065
  3. GLUCOPHAGE [Concomitant]
     Route: 065

REACTIONS (6)
  - ANAPHYLACTIC REACTION [None]
  - ERYTHEMA [None]
  - FACE OEDEMA [None]
  - MALAISE [None]
  - PRURITUS [None]
  - SYNCOPE [None]
